FAERS Safety Report 24926564 (Version 4)
Quarter: 2025Q3

REPORT INFORMATION
  Report Type: Report from Study
  Country: CN (occurrence: CN)
  Receive Date: 20250205
  Receipt Date: 20250909
  Transmission Date: 20251021
  Serious: Yes (Hospitalization)
  Sender: ROCHE
  Company Number: CN-ROCHE-10000192846

PATIENT
  Age: 1 Year
  Sex: Male

DRUGS (3)
  1. HEMLIBRA [Suspect]
     Active Substance: EMICIZUMAB-KXWH
     Indication: Factor VIII deficiency
     Route: 065
     Dates: start: 20250104
  2. KANG SI PING [Suspect]
     Active Substance: ANTIHEMOPHILIC FACTOR HUMAN
     Indication: Factor VIII deficiency
     Route: 065
     Dates: start: 20240513
  3. KANG SI PING [Suspect]
     Active Substance: ANTIHEMOPHILIC FACTOR HUMAN
     Route: 065
     Dates: start: 20240515

REACTIONS (15)
  - Procedural haemorrhage [Recovering/Resolving]
  - Sinus tachycardia [Unknown]
  - Neutrophil percentage decreased [Unknown]
  - Lymphocyte percentage increased [Unknown]
  - Haemoglobin decreased [Unknown]
  - Haematocrit decreased [Unknown]
  - Mean cell volume decreased [Unknown]
  - Mean cell haemoglobin decreased [Unknown]
  - Lymphocyte count increased [Unknown]
  - Red cell distribution width decreased [Unknown]
  - Platelet distribution width decreased [Unknown]
  - Mean platelet volume decreased [Unknown]
  - Plateletcrit increased [Unknown]
  - Neutrophil count decreased [Unknown]
  - Sinus arrhythmia [Unknown]

NARRATIVE: CASE EVENT DATE: 20250104
